FAERS Safety Report 15404200 (Version 1)
Quarter: 2018Q3

REPORT INFORMATION
  Report Type: Report from Study
  Country: US (occurrence: US)
  Receive Date: 20180919
  Receipt Date: 20180919
  Transmission Date: 20181010
  Serious: Yes (Death, Hospitalization, Other)
  Sender: FDA-Public Use
  Company Number: US-UCBSA-2018019469

PATIENT
  Age: 79 Year
  Sex: Female

DRUGS (14)
  1. KEPPRA [Suspect]
     Active Substance: LEVETIRACETAM
     Indication: SEIZURE
     Dosage: 1000 MG, 2X/DAY (BID)
  2. NAMENDA [Suspect]
     Active Substance: MEMANTINE HYDROCHLORIDE
     Indication: ANTEROGRADE AMNESIA
     Dosage: 21 MG, ONCE DAILY (QD)
     Route: 048
  3. LACOSAMIDE. [Suspect]
     Active Substance: LACOSAMIDE
     Indication: PARTIAL SEIZURES
     Dosage: 100 MG TIWCE DAILY, WITH 100MG AFTER DIALYSIS DAYS
  4. LACOSAMIDE. [Suspect]
     Active Substance: LACOSAMIDE
     Dosage: 150 MG, 2X/DAY (BID) WITH 1 EXTRA TABLET ON DIALYSIS DAYS (150 MG TABLET)
     Dates: start: 201702
  5. LACOSAMIDE. [Suspect]
     Active Substance: LACOSAMIDE
     Dosage: 1TABLET QAM 1.5TABQPM WITH 1 EXTRA TABLET ON DIALYSIS DAYS (150 MG TABLET)
     Dates: start: 20170522
  6. VALPROIC ACID. [Concomitant]
     Active Substance: VALPROIC ACID
     Indication: SEIZURE
     Dosage: UNK
  7. IRBESARTAN. [Concomitant]
     Active Substance: IRBESARTAN
     Dosage: 300 MG, ONCE DAILY (QD)
     Route: 048
  8. NAMENDA [Suspect]
     Active Substance: MEMANTINE HYDROCHLORIDE
     Dosage: 10 MG, ONCE DAILY (QD); WITH ONE EXTRA TABLET ON DIALYSIS DAYS
     Route: 048
  9. SINEMET [Concomitant]
     Active Substance: CARBIDOPA\LEVODOPA
     Indication: COGWHEEL RIGIDITY
     Dosage: 1 DF, 3X/DAY (TID) (25?100 MG)
     Route: 048
  10. DIVALPROEX SODIUM. [Concomitant]
     Active Substance: DIVALPROEX SODIUM
     Dosage: 250 MG, 2X/DAY (BID)
     Route: 048
     Dates: start: 201702
  11. LACOSAMIDE. [Suspect]
     Active Substance: LACOSAMIDE
     Indication: EPILEPSY
     Dosage: 150 MG IN AM AND 225 MG IN PM, (2X/DAY (BID))
     Route: 048
  12. MIRTAZAPINE. [Concomitant]
     Active Substance: MIRTAZAPINE
     Indication: DECREASED APPETITE
     Dosage: 7?5 MG
  13. KEPPRA [Suspect]
     Active Substance: LEVETIRACETAM
     Dosage: 500 MG, 2X/DAY (BID)
  14. NIFEDIPINE. [Concomitant]
     Active Substance: NIFEDIPINE
     Dosage: 90 MG, ONCE DAILY (QD)
     Route: 048

REACTIONS (16)
  - Lethargy [Recovered/Resolved]
  - Off label use [Unknown]
  - Focal dyscognitive seizures [Recovered/Resolved]
  - Hallucination, auditory [Recovered/Resolved]
  - Feeling abnormal [Recovered/Resolved]
  - Decreased appetite [Recovered/Resolved]
  - Agitation [Recovered/Resolved]
  - Overdose [Unknown]
  - Death [Fatal]
  - Weight decreased [Recovered/Resolved]
  - Hallucination, visual [Recovered/Resolved]
  - Deafness [Recovered/Resolved]
  - Memory impairment [Recovered/Resolved]
  - Seizure [Recovered/Resolved]
  - Feeling jittery [Recovered/Resolved]
  - Anaemia vitamin B12 deficiency [Recovered/Resolved]

NARRATIVE: CASE EVENT DATE: 2016
